FAERS Safety Report 4829989-3 (Version None)
Quarter: 2005Q4

REPORT INFORMATION
  Report Type: 
  Country: None (occurrence: None)
  Receive Date: 20051114
  Receipt Date: 20051102
  Transmission Date: 20060501
  Serious: Yes (Disabling)
  Sender: FDA-Public Use
  Company Number: FABR-11302

PATIENT
  Age: 46 Year
  Sex: Male
  Weight: 55 kg

DRUGS (3)
  1. FABRAZYME [Suspect]
     Indication: FABRY'S DISEASE
     Dosage: 55 MG Q2WKS IV
     Route: 042
     Dates: start: 20040513
  2. ACE INHIBITOR [Concomitant]
  3. ANGIOTENSIN RECEPTOR BLOCKER [Concomitant]

REACTIONS (5)
  - CONDITION AGGRAVATED [None]
  - DISEASE PROGRESSION [None]
  - FABRY'S DISEASE [None]
  - HAEMODIALYSIS [None]
  - RENAL FAILURE CHRONIC [None]
